FAERS Safety Report 8937159 (Version 1)
Quarter: 2012Q4

REPORT INFORMATION
  Report Type: Spontaneous
  Country: US (occurrence: None)
  Receive Date: 20121128
  Receipt Date: 20121128
  Transmission Date: 20130627
  Serious: Yes (Hospitalization)
  Sender: FDA-Public Use
  Company Number: None

PATIENT
  Age: 65 Year
  Sex: Female
  Weight: 71.8 kg

DRUGS (15)
  1. ASA [Suspect]
     Indication: CORONARY ARTERY DISEASE
     Dosage: CHRONIC
81MG DAILY PO
     Route: 048
  2. PLAVIX [Suspect]
     Indication: CORONARY ARTERY DISEASE
     Dosage: CHRONIC 
75MG DAILY PO
     Route: 048
  3. PRILOSEC [Concomitant]
  4. ZOLOFT [Concomitant]
  5. IMITREX [Concomitant]
  6. AZILSARTAN [Concomitant]
  7. TOPROL [Concomitant]
  8. METFORMIN [Concomitant]
  9. ALLEGRA [Concomitant]
  10. DEPAKOTE [Concomitant]
  11. CLONIDINE [Concomitant]
  12. CHLORZOXAZONE [Concomitant]
  13. NORVASTOR [Concomitant]
  14. CRESTOR [Concomitant]
  15. SINGULAR [Concomitant]

REACTIONS (7)
  - Hyponatraemia [None]
  - Anaemia [None]
  - Angina pectoris [None]
  - Chest discomfort [None]
  - Hiatus hernia [None]
  - Diverticulum intestinal [None]
  - Gastritis erosive [None]
